FAERS Safety Report 16533550 (Version 2)
Quarter: 2019Q3

REPORT INFORMATION
  Report Type: Spontaneous
  Country: US (occurrence: US)
  Receive Date: 20190704
  Receipt Date: 20190725
  Transmission Date: 20191004
  Serious: Yes (Hospitalization)
  Sender: FDA-Public Use
  Company Number: US-PINNACLE BIOLOGICS BV-2019-CLI-000007

PATIENT
  Sex: Female

DRUGS (1)
  1. PHOTOFRIN [Suspect]
     Active Substance: PORFIMER SODIUM
     Indication: OESOPHAGEAL CARCINOMA
     Dosage: UNK
     Dates: start: 20190626

REACTIONS (4)
  - Contusion [Recovered/Resolved]
  - Lip swelling [Recovered/Resolved]
  - Rash [Recovered/Resolved]
  - Angioedema [Recovered/Resolved]

NARRATIVE: CASE EVENT DATE: 201906
